FAERS Safety Report 20723784 (Version 1)
Quarter: 2022Q2

REPORT INFORMATION
  Report Type: Spontaneous
  Country: US (occurrence: US)
  Receive Date: 20220419
  Receipt Date: 20220419
  Transmission Date: 20220721
  Serious: No
  Sender: FDA-Public Use
  Company Number: US-drreddys-SPO/USA/22/0148927

PATIENT
  Age: 33 Year
  Sex: Female

DRUGS (2)
  1. ZENATANE [Suspect]
     Active Substance: ISOTRETINOIN
     Indication: Product used for unknown indication
     Dosage: RMA ISSUE DATE: 30 MARCH 2022 09:30:44 AM, 3 MARCH 2022 03:37:03 PM, 2 FEBRUARY 2022 09:34:06 AM AND
  2. ACCUTANE [Suspect]
     Active Substance: ISOTRETINOIN
     Indication: Product used for unknown indication
     Dosage: RMA ISSUE DATE:  29 NOVEMBER 2021 02:25:04 PM

REACTIONS (1)
  - Alopecia [Unknown]
